FAERS Safety Report 21220096 (Version 7)
Quarter: 2022Q4

REPORT INFORMATION
  Report Type: Report from Study
  Country: US (occurrence: US)
  Receive Date: 20220817
  Receipt Date: 20221207
  Transmission Date: 20230112
  Serious: Yes (Other)
  Sender: FDA-Public Use
  Company Number: US-NOVARTISTESTPH-NVSC2022US185171

PATIENT
  Sex: Female

DRUGS (1)
  1. COSENTYX [Suspect]
     Active Substance: SECUKINUMAB
     Indication: Ankylosing spondylitis
     Dosage: 150 MG, QMO
     Route: 058

REACTIONS (15)
  - Omphalitis [Unknown]
  - Injection site pain [Unknown]
  - Bronchitis [Not Recovered/Not Resolved]
  - Scar [Unknown]
  - Hernia [Unknown]
  - Cough [Unknown]
  - Pain in extremity [Unknown]
  - Injection site discharge [Unknown]
  - Condition aggravated [Unknown]
  - Blood blister [Unknown]
  - Feeling abnormal [Unknown]
  - Malaise [Unknown]
  - Incorrect dose administered [Unknown]
  - Accidental exposure to product [Unknown]
  - Therapeutic product effect decreased [Unknown]
